FAERS Safety Report 9740772 (Version 1)
Quarter: 2013Q4

REPORT INFORMATION
  Report Type: Spontaneous
  Country: JP (occurrence: JP)
  Receive Date: 20131209
  Receipt Date: 20131209
  Transmission Date: 20140711
  Serious: Yes (Hospitalization)
  Sender: FDA-Public Use
  Company Number: JP-PFIZER INC-2013348509

PATIENT
  Age: 78 Year
  Sex: Female

DRUGS (1)
  1. AROMASIN [Suspect]
     Dosage: 25 MG, DAILY
     Dates: start: 201003

REACTIONS (1)
  - Deep vein thrombosis [Unknown]
